FAERS Safety Report 5179433-4 (Version None)
Quarter: 2006Q4

REPORT INFORMATION
  Report Type: 
  Country: None (occurrence: None)
  Receive Date: 20061211
  Receipt Date: 20061204
  Transmission Date: 20070319
  Serious: Yes (Other)
  Sender: FDA-Public Use
  Company Number: CHPA2006US12522

PATIENT
  Age: 49 Year
  Sex: Female
  Weight: 90.7 kg

DRUGS (7)
  1. TRANSDERM SCOP [Suspect]
     Indication: VERTIGO
     Dosage: 1.5 MG, Q72H, TRANSDERMAL
     Route: 062
     Dates: start: 19980101
  2. HUMULIN R [Concomitant]
  3. LANTUS [Concomitant]
  4. SYNTHROID [Concomitant]
  5. MAXZIDE [Concomitant]
  6. ULTRAM [Concomitant]
  7. LORCET (HYDROCODONE BITRATRATE, PARACETAMOL) [Concomitant]

REACTIONS (9)
  - APPLICATION SITE ERYTHEMA [None]
  - APPLICATION SITE PRURITUS [None]
  - APPLICATION SITE VESICLES [None]
  - DRUG EFFECT DECREASED [None]
  - DRUG HYPERSENSITIVITY [None]
  - SKIN DISORDER [None]
  - SKIN IRRITATION [None]
  - SKIN ULCER [None]
  - WOUND DRAINAGE [None]
